FAERS Safety Report 5935008-8 (Version None)
Quarter: 2008Q4

REPORT INFORMATION
  Report Type: 
  Country: None (occurrence: None)
  Receive Date: 20081020
  Receipt Date: 20071012
  Transmission Date: 20090506
  Serious: Yes (Hospitalization)
  Sender: FDA-Public Use
  Company Number: 07-002095

PATIENT
  Age: 34 Year
  Sex: Female

DRUGS (8)
  1. FEMTRACE [Suspect]
     Indication: HORMONE SUPPRESSION THERAPY
     Dosage: 0.45MG, ORAL
     Route: 048
     Dates: start: 20060801
  2. PROMETRIUM [Suspect]
     Indication: HORMONE SUPPRESSION THERAPY
     Dosage: 100 MG, ORAL
     Route: 048
     Dates: start: 20060801
  3. GANIRELIX ACETATE INJECTION [Suspect]
     Indication: INFERTILITY
     Dates: start: 20060101
  4. FOLLISTIM [Suspect]
     Indication: INFERTILITY
     Dosage: 450 IU, SUBCUTANEOUS
     Route: 058
     Dates: start: 20060101
  5. MENOPUR [Suspect]
     Indication: INFERTILITY
     Dosage: 75 IU
     Dates: start: 20060101
  6. CHORIOGONADOTROPIN ALFA(CHORIOGONADOTROPIN ALFA) [Suspect]
     Indication: INFERTILITY
     Dosage: 10000 UNIT
     Dates: start: 20060901, end: 20060901
  7. PROGESTERONE(PROGESTERONE) INJECTION [Concomitant]
  8. PRENATAL VITAMINS  /01549301/ (ASCORBIC ACID, BIOTIN, MINERALS NOS, NI [Concomitant]

REACTIONS (1)
  - DEEP VEIN THROMBOSIS [None]
